FAERS Safety Report 12306561 (Version 2)
Quarter: 2016Q2

REPORT INFORMATION
  Report Type: Spontaneous
  Country: US (occurrence: US)
  Receive Date: 20160426
  Receipt Date: 20160519
  Transmission Date: 20160815
  Serious: Yes (Other)
  Sender: FDA-Public Use
  Company Number: US-CELGENEUS-USA-2016046563

PATIENT
  Sex: Female
  Weight: 52.21 kg

DRUGS (1)
  1. REVLIMID [Suspect]
     Active Substance: LENALIDOMIDE
     Indication: PLASMA CELL MYELOMA
     Dosage: 10 MILLIGRAM
     Route: 048
     Dates: start: 20160227

REACTIONS (7)
  - Lethargy [Unknown]
  - Fatigue [Unknown]
  - Dry skin [Not Recovered/Not Resolved]
  - Anxiety [Unknown]
  - Skin exfoliation [Not Recovered/Not Resolved]
  - Insomnia [Unknown]
  - Upper respiratory tract infection [Not Recovered/Not Resolved]

NARRATIVE: CASE EVENT DATE: 2016
